FAERS Safety Report 5320901-X (Version None)
Quarter: 2007Q2

REPORT INFORMATION
  Report Type: 
  Country: None (occurrence: None)
  Receive Date: 20070504
  Receipt Date: 20070424
  Transmission Date: 20071010
  Serious: Yes (Other)
  Sender: FDA-Public Use
  Company Number: 2007SP004135

PATIENT
  Age: 14 Year
  Sex: Male
  Weight: 28 kg

DRUGS (16)
  1. NOXAFIL [Suspect]
     Indication: ANTIFUNGAL PROPHYLAXIS
     Dosage: 200 MG QID PO
     Route: 048
     Dates: start: 20070213, end: 20070226
  2. METHOTREXATE [Suspect]
     Indication: B-CELL LYMPHOMA
     Dosage: 1080 MG IV
     Route: 042
     Dates: start: 20070222, end: 20070222
  3. CYTARABINE [Concomitant]
  4. VINCRISTINE [Concomitant]
  5. PREDNISON [Concomitant]
  6. ZOFRAN [Concomitant]
  7. ALLOPURINOL [Concomitant]
  8. DEXAMETHASONE 0.5MG TAB [Concomitant]
  9. CYCLOPHOSPHAMIDE [Concomitant]
  10. UROMITEXAN [Concomitant]
  11. KEPINOL [Concomitant]
  12. LASIX [Concomitant]
  13. LEUCOVORIN CALCIUM [Concomitant]
  14. DORMICUM [Concomitant]
  15. KETANEST [Concomitant]
  16. OMEPRAZOLE [Concomitant]

REACTIONS (2)
  - DRUG CLEARANCE DECREASED [None]
  - DRUG INTERACTION [None]
